FAERS Safety Report 24249814 (Version 1)
Quarter: 2024Q3

REPORT INFORMATION
  Report Type: Spontaneous
  Country: US (occurrence: None)
  Receive Date: 20240823
  Receipt Date: 20240823
  Transmission Date: 20241016
  Serious: Yes (Disabling)
  Sender: Public
  Company Number: None

PATIENT
  Age: 55 Year
  Sex: Female
  Weight: 75.6 kg

DRUGS (3)
  1. METHYLPREDNISOLONE [Suspect]
     Active Substance: METHYLPREDNISOLONE
     Indication: Limb discomfort
     Dates: start: 20240803, end: 20240808
  2. METHYLPREDNISOLONE [Suspect]
     Active Substance: METHYLPREDNISOLONE
     Indication: Inflammation
  3. Benadryl [Concomitant]

REACTIONS (9)
  - Rash macular [None]
  - Rash [None]
  - Flushing [None]
  - Skin burning sensation [None]
  - Rash papular [None]
  - Skin tightness [None]
  - Dry skin [None]
  - Reaction to excipient [None]
  - Pruritus [None]

NARRATIVE: CASE EVENT DATE: 20240804
